FAERS Safety Report 6544237-4 (Version None)
Quarter: 2010Q1

REPORT INFORMATION
  Report Type: 
  Country: None (occurrence: None)
  Receive Date: 20100120
  Receipt Date: 20100108
  Transmission Date: 20100710
  Serious: Yes (Other)
  Sender: FDA-Public Use
  Company Number: ES-ELI_LILLY_AND_COMPANY-ES201001001863

PATIENT
  Age: 14 Year
  Sex: Male

DRUGS (3)
  1. STRATTERA [Suspect]
     Indication: ATTENTION DEFICIT/HYPERACTIVITY DISORDER
     Dosage: 18 MG, UNKNOWN
     Route: 048
     Dates: start: 20091223, end: 20091229
  2. STRATTERA [Suspect]
     Dosage: 20 MG, UNKNOWN
     Route: 048
     Dates: start: 20091230, end: 20100105
  3. STRATTERA [Suspect]
     Dosage: 40 MG, UNKNOWN
     Route: 048
     Dates: start: 20100106, end: 20100108

REACTIONS (2)
  - INTENTIONAL SELF-INJURY [None]
  - PERIPHERAL COLDNESS [None]
